FAERS Safety Report 23444426 (Version 2)
Quarter: 2025Q3

REPORT INFORMATION
  Report Type: Spontaneous
  Country: EU (occurrence: EU)
  Receive Date: 20240125
  Receipt Date: 20250801
  Transmission Date: 20251021
  Serious: Yes (Other)
  Sender: TEVA
  Company Number: EU-TEVA-VS-3140609

PATIENT
  Sex: Male

DRUGS (4)
  1. TERBINAFINE [Suspect]
     Active Substance: TERBINAFINE
     Indication: Body tinea
     Route: 065
     Dates: start: 2012, end: 2013
  2. FLUCONAZOLE [Suspect]
     Active Substance: FLUCONAZOLE
     Indication: Body tinea
     Route: 065
     Dates: start: 201306, end: 201504
  3. VORICONAZOLE [Suspect]
     Active Substance: VORICONAZOLE
     Indication: Body tinea
     Route: 065
     Dates: start: 201708, end: 201710
  4. ITRACONAZOLE [Suspect]
     Active Substance: ITRACONAZOLE
     Indication: Body tinea
     Route: 065
     Dates: start: 201611, end: 201703

REACTIONS (7)
  - Drug intolerance [Unknown]
  - Pruritus [Unknown]
  - Drug ineffective [Unknown]
  - Photosensitivity reaction [Unknown]
  - Dermatitis [Unknown]
  - Burning sensation [Unknown]
  - Hepatic enzyme increased [Unknown]
